FAERS Safety Report 10210895 (Version 1)
Quarter: 2014Q2

REPORT INFORMATION
  Report Type: Spontaneous
  Country: US (occurrence: None)
  Receive Date: 20140530
  Receipt Date: 20140530
  Transmission Date: 20141212
  Serious: Yes (Other)
  Sender: FDA-Public Use
  Company Number: None

PATIENT
  Age: 67 Year
  Sex: Male
  Weight: 145.15 kg

DRUGS (1)
  1. AMITRIPTYLINE HCL [Suspect]
     Indication: NERVOUSNESS
     Route: 048
     Dates: start: 201310, end: 201311

REACTIONS (2)
  - Pain in extremity [None]
  - Hypoaesthesia [None]
